FAERS Safety Report 23300938 (Version 1)
Quarter: 2023Q4

REPORT INFORMATION
  Report Type: Spontaneous
  Country: US (occurrence: None)
  Receive Date: 20231214
  Receipt Date: 20231214
  Transmission Date: 20240109
  Serious: No
  Sender: FDA-Public Use
  Company Number: None

PATIENT
  Age: 45 Year
  Sex: Female
  Weight: 63.5 kg

DRUGS (1)
  1. COSENTYX [Suspect]
     Active Substance: SECUKINUMAB
     Indication: Psoriasis
     Dosage: INJECT 300MG (1 PEN) SUBCUTANEOUSLY ONCE A WEEK FOR 5 WEEKS AS DIRECTED?
     Route: 058
     Dates: start: 202310

REACTIONS (2)
  - Oropharyngeal pain [None]
  - Nausea [None]
